FAERS Safety Report 20483779 (Version 3)
Quarter: 2022Q1

REPORT INFORMATION
  Report Type: Spontaneous
  Country: US (occurrence: US)
  Receive Date: 20220217
  Receipt Date: 20220308
  Transmission Date: 20220424
  Serious: Yes (Hospitalization)
  Sender: FDA-Public Use
  Company Number: US-ORGANON-O2202USA001230

PATIENT
  Age: 71 Year
  Sex: Female

DRUGS (3)
  1. DULERA [Suspect]
     Active Substance: FORMOTEROL FUMARATE DIHYDRATE\MOMETASONE FUROATE
     Indication: Bronchitis chronic
     Dosage: UNK
     Dates: start: 202008, end: 202112
  2. DULERA [Suspect]
     Active Substance: FORMOTEROL FUMARATE DIHYDRATE\MOMETASONE FUROATE
     Indication: Bronchitis chronic
     Dosage: 2 PUFFS BID
     Dates: start: 20220128
  3. TRELEGY ELLIPTA [Suspect]
     Active Substance: FLUTICASONE FUROATE\UMECLIDINIUM BROMIDE\VILANTEROL TRIFENATATE
     Dosage: UNKNOWN, ONCE A DAY
     Dates: start: 202112

REACTIONS (7)
  - Swelling [Recovered/Resolved]
  - Fluid retention [Recovered/Resolved]
  - Poor quality device used [Unknown]
  - Device malfunction [Unknown]
  - Product packaging quantity issue [Unknown]
  - Product use in unapproved indication [Unknown]
  - Product quality issue [Unknown]

NARRATIVE: CASE EVENT DATE: 20200801
